FAERS Safety Report 10476435 (Version 2)
Quarter: 2014Q4

REPORT INFORMATION
  Report Type: Spontaneous
  Country: US (occurrence: US)
  Receive Date: 20140925
  Receipt Date: 20141209
  Transmission Date: 20150528
  Serious: Yes (Hospitalization)
  Sender: FDA-Public Use
  Company Number: US-ELI_LILLY_AND_COMPANY-US201409006353

PATIENT
  Age: 62 Year
  Sex: Male

DRUGS (2)
  1. HUMALOG [Suspect]
     Active Substance: INSULIN LISPRO
     Indication: TYPE 2 DIABETES MELLITUS
     Dosage: UNK
     Route: 065
     Dates: start: 2013
  2. LANTUS [Concomitant]
     Active Substance: INSULIN GLARGINE

REACTIONS (11)
  - Fall [Recovering/Resolving]
  - Dehydration [Unknown]
  - Arthritis [Recovering/Resolving]
  - Myoclonus [Recovering/Resolving]
  - Poor quality sleep [Unknown]
  - Urinary retention [Unknown]
  - Hypoglycaemia [Unknown]
  - Joint stiffness [Unknown]
  - Swelling [Recovering/Resolving]
  - Prostatomegaly [Recovering/Resolving]
  - Pain [Unknown]

NARRATIVE: CASE EVENT DATE: 201310
